FAERS Safety Report 6597144-5 (Version None)
Quarter: 2010Q1

REPORT INFORMATION
  Report Type: 
  Country: None (occurrence: None)
  Receive Date: 20100223
  Receipt Date: 20100215
  Transmission Date: 20100710
  Serious: Yes (Hospitalization)
  Sender: FDA-Public Use
  Company Number: JP-ROCHE-640078

PATIENT
  Sex: Female

DRUGS (26)
  1. TOCILIZUMAB [Suspect]
     Indication: RHEUMATOID ARTHRITIS
     Route: 041
     Dates: start: 20080704, end: 20080704
  2. TOCILIZUMAB [Suspect]
     Route: 041
     Dates: start: 20080801, end: 20080801
  3. TOCILIZUMAB [Suspect]
     Route: 041
     Dates: start: 20080905, end: 20080905
  4. TOCILIZUMAB [Suspect]
     Route: 041
     Dates: start: 20081003, end: 20081003
  5. TOCILIZUMAB [Suspect]
     Route: 041
     Dates: start: 20081031, end: 20081031
  6. TOCILIZUMAB [Suspect]
     Route: 041
     Dates: start: 20081128, end: 20081128
  7. TOCILIZUMAB [Suspect]
     Route: 041
     Dates: start: 20081226, end: 20081226
  8. TOCILIZUMAB [Suspect]
     Route: 041
     Dates: end: 20090612
  9. ISONIAZID [Suspect]
     Indication: ANTIBIOTIC PROPHYLAXIS
     Route: 048
     Dates: start: 20080530, end: 20081031
  10. METHOTREXATE [Concomitant]
     Route: 048
     Dates: start: 20060325
  11. PREDNISOLONE [Concomitant]
     Dosage: FORM: ORAL FORMULATION NOS
     Route: 048
     Dates: end: 20080801
  12. PREDNISOLONE [Concomitant]
     Route: 048
     Dates: start: 20080802, end: 20081003
  13. PREDNISOLONE [Concomitant]
     Route: 048
     Dates: start: 20081004, end: 20081031
  14. PREDNISOLONE [Concomitant]
     Route: 048
     Dates: start: 20081101, end: 20081128
  15. PREDNISOLONE [Concomitant]
     Route: 048
     Dates: start: 20081129, end: 20081226
  16. LOXONIN [Concomitant]
     Route: 048
     Dates: start: 20060522
  17. SELBEX [Concomitant]
     Route: 048
     Dates: start: 20060623
  18. FOLIAMIN [Concomitant]
     Route: 048
     Dates: start: 20061201
  19. URSO 250 [Concomitant]
     Route: 048
     Dates: start: 20070119
  20. BONALON [Concomitant]
     Route: 048
     Dates: start: 20070119
  21. BLOPRESS [Concomitant]
     Route: 048
  22. AMLODIPINE [Concomitant]
     Route: 048
  23. AMLODIPINE [Concomitant]
     Route: 048
     Dates: start: 20060521
  24. ARTIST [Concomitant]
     Route: 048
  25. LASIX [Concomitant]
     Dosage: FORM:ORAL FORMULATION NOS
     Route: 048
  26. ALDACTONE [Concomitant]
     Dosage: FORM:ORAL FORMULATION NOS
     Route: 048

REACTIONS (4)
  - CONJUNCTIVITIS [None]
  - INFUSION RELATED REACTION [None]
  - LIVER DISORDER [None]
  - TONSILLITIS [None]
